FAERS Safety Report 20632269 (Version 3)
Quarter: 2022Q2

REPORT INFORMATION
  Report Type: Spontaneous
  Country: TH (occurrence: TH)
  Receive Date: 20220324
  Receipt Date: 20220418
  Transmission Date: 20220721
  Serious: Yes (Life-Threatening, Hospitalization, Disabling, Other)
  Sender: FDA-Public Use
  Company Number: TH-MACLEODS PHARMACEUTICALS US LTD-MAC2022034913

PATIENT

DRUGS (5)
  1. LIDOCAINE [Suspect]
     Active Substance: LIDOCAINE
     Indication: Local anaesthesia
     Dosage: 0.21 %,LIDOCAINE SOLUTION (1,200 MG OF LIDOCAINE IN 560 ML FLUIDS), SOLUTION FOR INJECTION
     Route: 058
  2. LIDOCAINE [Suspect]
     Active Substance: LIDOCAINE
     Indication: Liposuction
     Dosage: 0.21 %,LIDOCAINE SOLUTION (500 ML) INTO ABDOMEN (TOTAL DOSE OF 2,400 MG OF LIDOCAINE (49 MG/KG))
     Route: 058
  3. EPINEPHRINE [Concomitant]
     Active Substance: EPINEPHRINE
     Indication: Product used for unknown indication
     Dosage: 0.2  MILLIGRAM (N 500 ML OF RINGER?S LACTATE SOLUTION)
     Route: 065
  4. LACTATED RINGERS SOLUTION [Concomitant]
     Active Substance: CALCIUM CHLORIDE\POTASSIUM CHLORIDE\SODIUM CHLORIDE\SODIUM LACTATE
     Indication: Liposuction
     Dosage: 1000 MILLILITER, SINGLE, 500 ML OF RINGER^S LACTATE SOLUTION AT THE BACK OF BOTH THIGHS AND 500-ML W
     Route: 042
  5. EPINEPHRINE [Concomitant]
     Active Substance: EPINEPHRINE
     Indication: Liposuction
     Dosage: 0.4 MILLIGRAM, SINGLE, 0.2 MG IN 500 ML OF RINGER^S LACTATE SOLUTION SUBCUTANEOUSLY AT THE BACK OF B
     Route: 042

REACTIONS (11)
  - Generalised tonic-clonic seizure [Recovered/Resolved]
  - Metabolic acidosis [Recovered/Resolved]
  - Hypoxic-ischaemic encephalopathy [Not Recovered/Not Resolved]
  - Pulseless electrical activity [Recovered/Resolved]
  - Sinus tachycardia [Recovered/Resolved]
  - Electrocardiogram QT prolonged [Recovered/Resolved]
  - Cardiac arrest [Recovered/Resolved]
  - Local anaesthetic systemic toxicity [Recovered/Resolved]
  - Incorrect route of product administration [Recovered/Resolved]
  - Accidental exposure to product [Recovered/Resolved]
  - Accidental overdose [Recovered/Resolved]
